FAERS Safety Report 4655099-4 (Version None)
Quarter: 2005Q2

REPORT INFORMATION
  Report Type: 
  Country: None (occurrence: None)
  Receive Date: 20050505
  Receipt Date: 20050323
  Transmission Date: 20051028
  Serious: Yes (Life-Threatening)
  Sender: FDA-Public Use
  Company Number: 805#1#2005-00013

PATIENT
  Age: 80 Year
  Sex: Female

DRUGS (12)
  1. ALPROSTADIL [Suspect]
     Indication: LUMBAR SPINAL STENOSIS
     Dosage: 80 MCG (40 MCG 2 IN 1 DAY (S) ) INTRAVENOUS DRIP
     Route: 041
     Dates: start: 20050310, end: 20050311
  2. REBOLASE (COCARBOXYLASE) [Suspect]
     Indication: LUMBAR SPINAL STENOSIS
     Dates: start: 20050310, end: 20050311
  3. LOXOPROFEN [Suspect]
     Indication: LUMBAR SPINAL STENOSIS
     Dosage: 180 MG ORAL
     Route: 048
     Dates: end: 20050311
  4. TEPRENONE (TEPRENONE) [Suspect]
     Indication: GASTRITIS
     Dosage: 150 MG ORAL
     Route: 048
     Dates: end: 20050311
  5. CALCIUM-L-ASPARTATE (ASPARTATE CALCIUM) [Suspect]
     Indication: OSTEOPOROSIS
     Dosage: 600 MG ORAL
     Route: 046
     Dates: end: 20050311
  6. AMLODIPINE BESYLATE [Suspect]
     Indication: HYPERTENSION
     Dosage: 2.5 MG ORAL
     Route: 048
     Dates: end: 20050311
  7. CALCITRIOL [Suspect]
     Indication: OSTEOPOROSIS
     Dosage: .5 MCG ORAL
     Route: 048
     Dates: end: 20050311
  8. LOSARTAN POTASSIUM [Suspect]
     Indication: HYPERTENSION
     Dosage: 50 MG ORAL
     Route: 048
     Dates: end: 20050311
  9. SODIUM-FERROUS-CITRATE (FERROUS CITRATE) [Suspect]
     Indication: ANAEMIA
     Dosage: 100 MG ORAL
     Route: 048
     Dates: end: 20050311
  10. SALICYLAMIDE/ACETAMINOPHEN/ANHYDROUS-CAFFEINE/PROMETHAZINE-METHYLENEDI [Suspect]
     Indication: NASOPHARYNGITIS
     Dosage: 3 G ORAL
     Route: 048
     Dates: end: 20050311
  11. EPADEL (ETHYL ICOSAPENTATE) [Suspect]
     Dosage: ORAL
     Route: 048
     Dates: end: 20050311
  12. METHYCOBAL (MECOBALAMIN) [Suspect]
     Dates: end: 20050311

REACTIONS (5)
  - HISTIOCYTOSIS HAEMATOPHAGIC [None]
  - IDIOPATHIC THROMBOCYTOPENIC PURPURA [None]
  - MUCOSAL EROSION [None]
  - SPINAL OPERATION [None]
  - UPPER RESPIRATORY TRACT INFLAMMATION [None]
